FAERS Safety Report 10029837 (Version 1)
Quarter: 2014Q1

REPORT INFORMATION
  Report Type: Spontaneous
  Country: US (occurrence: None)
  Receive Date: 20140320
  Receipt Date: 20140320
  Transmission Date: 20141002
  Serious: Yes (Hospitalization)
  Sender: FDA-Public Use
  Company Number: QSC-2014-0142

PATIENT
  Age: 23 Year
  Sex: Male

DRUGS (1)
  1. H.P. ACTHAR GEL (ADRENOCORTICOTROPIC HORMONE) GEL FOR INJECTION, 80U/ML [Suspect]
     Indication: NEPHROTIC SYNDROME
     Dates: start: 201402

REACTIONS (4)
  - Dehydration [None]
  - Vomiting [None]
  - Nausea [None]
  - Blood creatinine increased [None]
